FAERS Safety Report 23119396 (Version 2)
Quarter: 2023Q4

REPORT INFORMATION
  Report Type: Spontaneous
  Country: DE (occurrence: DE)
  Receive Date: 20231028
  Receipt Date: 20231106
  Transmission Date: 20240110
  Serious: Yes (Death, Hospitalization, Other)
  Sender: FDA-Public Use
  Company Number: DE-Abanta-230630-01

PATIENT
  Age: 57 Year
  Sex: Male

DRUGS (3)
  1. CYTARABINE [Suspect]
     Active Substance: CYTARABINE
     Indication: Pachymeningitis
     Dosage: 40 MG, INTRAVENTRICULAR CHEMOTHERAPY WITH CYTARABINE (INTRACEREBROVENTRICULAR USE)
  2. DEXAMETHASONE SODIUM PHOSPHATE [Suspect]
     Active Substance: DEXAMETHASONE SODIUM PHOSPHATE
     Indication: Pachymeningitis
     Dosage: 4 MG, (DEXAMETHASONE WAS INITIATED BY IMPLANTING AN OMMAYA RESERVOIR) (INTRACEREBROVENTRICULAR USE)
  3. METHOTREXATE [Suspect]
     Active Substance: METHOTREXATE
     Indication: Pachymeningitis
     Dosage: 15 MG, INTRAVENTRICULAR CHEMOTHERAPY WITH METHOTREXATE (INTRACEREBROVENTRICULAR USE)

REACTIONS (8)
  - Interleukin level decreased [Fatal]
  - CSF cell count decreased [Fatal]
  - Ischaemic stroke [Fatal]
  - CSF lactate decreased [Fatal]
  - Meningeal thickening [Fatal]
  - Pachymeningitis [Fatal]
  - Cerebrospinal fluid reservoir placement [Fatal]
  - Substance-induced psychotic disorder [Recovered/Resolved]
